FAERS Safety Report 5457241-4 (Version None)
Quarter: 2007Q3

REPORT INFORMATION
  Report Type: 
  Country: None (occurrence: None)
  Receive Date: 20070918
  Receipt Date: 20070124
  Transmission Date: 20080115
  Serious: No
  Sender: FDA-Public Use
  Company Number: US-ASTRAZENECA-2007UW01500

PATIENT
  Age: 50 Year
  Sex: Female
  Weight: 67.6 kg

DRUGS (5)
  1. SEROQUEL [Suspect]
     Indication: INSOMNIA
     Route: 048
     Dates: start: 20070120
  2. SEROQUEL [Suspect]
     Route: 048
     Dates: start: 20070103, end: 20070117
  3. XANAX [Concomitant]
  4. DIGESTISURE [Concomitant]
  5. PHOSPHATIDYLCHOLINE [Concomitant]

REACTIONS (11)
  - CHILLS [None]
  - CONSTIPATION [None]
  - DRUG INEFFECTIVE [None]
  - HYPERHIDROSIS [None]
  - ILL-DEFINED DISORDER [None]
  - MUSCLE SPASMS [None]
  - PSYCHOMOTOR HYPERACTIVITY [None]
  - SENSORY LEVEL ABNORMAL [None]
  - SNEEZING [None]
  - SOMNOLENCE [None]
  - YAWNING [None]
